FAERS Safety Report 9925212 (Version 1)
Quarter: 2014Q1

REPORT INFORMATION
  Report Type: Spontaneous
  Country: US (occurrence: US)
  Receive Date: 20140226
  Receipt Date: 20140226
  Transmission Date: 20141002
  Serious: Yes (Hospitalization)
  Sender: FDA-Public Use
  Company Number: US-BRACCO-009412

PATIENT
  Age: 65 Year
  Sex: Female
  Weight: 84 kg

DRUGS (25)
  1. CLOPIDOGREL [Suspect]
     Indication: PERCUTANEOUS CORONARY INTERVENTION
     Dates: start: 20110426, end: 20110426
  2. ALL OTHER THERAPEUTIC PRODUCTS [Suspect]
     Indication: PERCUTANEOUS CORONARY INTERVENTION
     Dosage: POST INFUSION DOSE 4 CAPSULES
     Route: 048
     Dates: start: 20110426, end: 20110426
  3. ISOVUE 370 [Suspect]
     Indication: ANGIOGRAM
     Route: 013
     Dates: start: 20110425, end: 20110425
  4. ISOVUE 370 [Suspect]
     Indication: PERCUTANEOUS CORONARY INTERVENTION
     Route: 013
     Dates: start: 20110426, end: 20110426
  5. ASPIRIN [Concomitant]
     Dates: start: 20101227
  6. HEPARIN [Concomitant]
  7. CLOPIDOGREL [Concomitant]
  8. METOPROLOL TARTRATE [Concomitant]
     Dates: start: 20101227
  9. ROSUVASTATIN CALCIUM [Concomitant]
     Dates: start: 20080501
  10. FELODIPINE [Concomitant]
     Dates: start: 20080730
  11. FUROSEMIDE [Concomitant]
     Dates: start: 20101022, end: 20110429
  12. HUMULIN N [Concomitant]
     Dates: start: 20061026
  13. SIMETHICONE [Concomitant]
     Dates: start: 20080710
  14. HYDROCODONE [Concomitant]
     Dates: start: 20101227
  15. ACETAMINOPHEN [Concomitant]
     Dates: start: 20101227
  16. VISIPAQUE [Suspect]
     Indication: ANGIOGRAM
     Route: 013
     Dates: start: 20110425, end: 20110425
  17. ALL OTHER THERAPEUTIC PRODUCTS [Suspect]
     Indication: PERCUTANEOUS CORONARY INTERVENTION
     Dosage: 49 ML/HOUR
     Route: 042
     Dates: start: 20110426, end: 20110426
  18. FEXOFENADINE HCL [Concomitant]
     Dates: start: 20110307
  19. POTASSIUM CHLORIDE [Concomitant]
     Dates: start: 20101022, end: 20110429
  20. ZOLPIDEM TARTRATE [Concomitant]
     Dates: start: 20110401
  21. POTASSIUM IODIDE [Concomitant]
     Dates: start: 20110411, end: 20110429
  22. CHOLESTYRAMINE [Concomitant]
     Dates: start: 20110411
  23. ALL OTHER THERAPEUTIC PRODUCTS [Suspect]
     Indication: PERCUTANEOUS CORONARY INTERVENTION
     Dosage: LOADING DOSE 4 CAPSULES
     Route: 048
     Dates: start: 20110426, end: 20110426
  24. BUPROPION HCL [Concomitant]
     Dates: start: 20110401, end: 20110513
  25. METHIMAZOLE [Concomitant]
     Dates: start: 20110411

REACTIONS (1)
  - Nephropathy toxic [Recovered/Resolved]
